FAERS Safety Report 7005041-6 (Version None)
Quarter: 2010Q3

REPORT INFORMATION
  Report Type: 
  Country: None (occurrence: None)
  Receive Date: 20100920
  Receipt Date: 20100920
  Transmission Date: 20110219
  Serious: Yes (Death)
  Sender: FDA-Public Use
  Company Number: None

PATIENT
  Age: 30 Month
  Sex: Female

DRUGS (1)
  1. OSCO LICE TREATMENT SHAMPOO [Suspect]
     Indication: LICE INFESTATION
     Dates: start: 20001104

REACTIONS (6)
  - DYSPNOEA [None]
  - ERYTHEMA [None]
  - EYE ROLLING [None]
  - RESPIRATORY DISTRESS [None]
  - SKIN EXFOLIATION [None]
  - THERMAL BURN [None]
